FAERS Safety Report 4274408-1 (Version None)
Quarter: 2004Q1

REPORT INFORMATION
  Report Type: 
  Country: None (occurrence: None)
  Receive Date: 20040120
  Receipt Date: 20031208
  Transmission Date: 20041129
  Serious: Yes (Hospitalization, Disabling)
  Sender: FDA-Public Use
  Company Number: WAES 0312USA00939

PATIENT
  Age: 64 Year
  Sex: Male

DRUGS (13)
  1. [THERAPY UNSPECIFIED] [Concomitant]
  2. ASPIRIN [Concomitant]
  3. CITRICAL [Concomitant]
  4. FISH OIL (UNSPECIFIED) [Concomitant]
  5. AMARYL [Concomitant]
     Indication: DIABETES MELLITUS
  6. PRINZIDE [Concomitant]
     Route: 048
  7. INSULIN [Concomitant]
  8. CENTRUM [Concomitant]
  9. REMERON [Concomitant]
  10. PREDNISONE [Concomitant]
  11. ZOCOR [Suspect]
     Indication: HYPERCHOLESTEROLAEMIA
     Route: 048
     Dates: start: 20030801, end: 20030101
  12. ALDACTONE [Concomitant]
  13. ARMOUR THYROID TABLETS [Concomitant]

REACTIONS (4)
  - ABASIA [None]
  - ASTHENIA [None]
  - FALL [None]
  - MYOPATHY [None]
